FAERS Safety Report 15440083 (Version 4)
Quarter: 2018Q4

REPORT INFORMATION
  Report Type: Spontaneous
  Country: GB (occurrence: GB)
  Receive Date: 20180928
  Receipt Date: 20181025
  Transmission Date: 20190204
  Serious: Yes (Hospitalization, Other)
  Sender: FDA-Public Use
  Company Number: GB-MYLANLABS-2018M1071274

PATIENT
  Age: 79 Year
  Sex: Female

DRUGS (3)
  1. CLOZARIL [Suspect]
     Active Substance: CLOZAPINE
     Dosage: 25 MG, BID
     Route: 048
     Dates: start: 2018
  2. CLOZARIL [Suspect]
     Active Substance: CLOZAPINE
     Indication: SCHIZOPHRENIA
     Dosage: UNK
     Route: 048
     Dates: start: 20130402
  3. CLOZARIL [Suspect]
     Active Substance: CLOZAPINE
     Dosage: UNK
     Route: 048
     Dates: start: 2018

REACTIONS (10)
  - Respiratory arrest [Unknown]
  - Mental impairment [Unknown]
  - Agitation [Unknown]
  - Delirium [Unknown]
  - Seizure [Unknown]
  - Paranoia [Unknown]
  - Syncope [Unknown]
  - Hip arthroplasty [Recovering/Resolving]
  - Confusional state [Unknown]
  - Psychotic disorder [Unknown]

NARRATIVE: CASE EVENT DATE: 2018
